FAERS Safety Report 9501432 (Version 2)
Quarter: 2013Q3

REPORT INFORMATION
  Report Type: Spontaneous
  Country: US (occurrence: US)
  Receive Date: 20130905
  Receipt Date: 20130911
  Transmission Date: 20140515
  Serious: Yes (Hospitalization)
  Sender: FDA-Public Use
  Company Number: US-GLAXOSMITHKLINE-A1040147A

PATIENT
  Age: 59 Year
  Sex: Female

DRUGS (2)
  1. BACTROBAN [Suspect]
     Indication: INFECTION
     Route: 061
     Dates: start: 20030101
  2. ALTABAX [Suspect]
     Indication: INFECTION
     Route: 061

REACTIONS (3)
  - Cellulitis [Unknown]
  - Skin infection [Unknown]
  - Asthenia [Unknown]
